FAERS Safety Report 15488903 (Version 3)
Quarter: 2018Q4

REPORT INFORMATION
  Report Type: Spontaneous
  Country: ES (occurrence: ES)
  Receive Date: 20181011
  Receipt Date: 20181221
  Transmission Date: 20190205
  Serious: Yes (Hospitalization, Other)
  Sender: FDA-Public Use
  Company Number: ES-PFIZER INC-2018405644

PATIENT
  Age: 30 Year
  Sex: Female

DRUGS (7)
  1. SODIUM [Concomitant]
     Active Substance: SODIUM
     Indication: FLUID OVERLOAD
     Dosage: UNK, FIXED INTRAVENOUS REGIMEN PLUS ORAL RESCUE REGIMEN
     Route: 042
  2. CISPLATIN. [Concomitant]
     Active Substance: CISPLATIN
     Indication: OSTEOSARCOMA
     Dosage: 120 MG/M2, CYCLIC
  3. METHOTREXATE SODIUM. [Suspect]
     Active Substance: METHOTREXATE SODIUM
     Indication: OSTEOSARCOMA
     Dosage: 12 MG/M2, CYCLIC (HIGH DOSE, TOTAL DOSE OF 20.8 GRAM, OVER 4 HOURS)
  4. SODIUM BICARBONATE. [Concomitant]
     Active Substance: SODIUM BICARBONATE
     Indication: FLUID OVERLOAD
     Dosage: UNK, FIXED INTRAVENOUS REGIMEN PLUS ORAL RESCUE REGIMEN
     Route: 048
  5. SODIUM BICARBONATE. [Concomitant]
     Active Substance: SODIUM BICARBONATE
     Dosage: UNK, FIXED INTRAVENOUS REGIMEN PLUS ORAL RESCUE REGIMEN
     Route: 042
  6. DOXORUBICIN [Concomitant]
     Active Substance: DOXORUBICIN
     Indication: OSTEOSARCOMA
     Dosage: 75 MG/M2, CYCLIC
  7. SODIUM [Concomitant]
     Active Substance: SODIUM
     Dosage: UNK, FIXED INTRAVENOUS REGIMEN PLUS ORAL RESCUE REGIMEN
     Route: 048

REACTIONS (4)
  - Crystalluria [Recovered/Resolved]
  - Drug level increased [Recovered/Resolved]
  - Nephropathy toxic [Recovered/Resolved]
  - Hepatotoxicity [Recovered/Resolved]
